FAERS Safety Report 7985947-1 (Version None)
Quarter: 2011Q4

REPORT INFORMATION
  Report Type: 
  Country: None (occurrence: None)
  Receive Date: 20111214
  Receipt Date: 20111209
  Transmission Date: 20120403
  Serious: Yes (Hospitalization, Other)
  Sender: FDA-Public Use
  Company Number: 2010SP056522

PATIENT
  Age: 27 Year
  Sex: Female
  Weight: 61.2356 kg

DRUGS (1)
  1. NUVARING [Suspect]
     Indication: CONTRACEPTION
     Dates: start: 20050101, end: 20050301

REACTIONS (59)
  - PAIN [None]
  - ANGINA PECTORIS [None]
  - TRANSVERSE SINUS THROMBOSIS [None]
  - MENTAL DISORDER [None]
  - DIZZINESS [None]
  - OVARIAN CYST [None]
  - DEAFNESS [None]
  - GASTROINTESTINAL HAEMORRHAGE [None]
  - RECTAL HAEMORRHAGE [None]
  - HEART RATE IRREGULAR [None]
  - ARTHRALGIA [None]
  - THALAMIC INFARCTION [None]
  - DERMATITIS [None]
  - DIARRHOEA [None]
  - VIITH NERVE PARALYSIS [None]
  - NASOPHARYNGITIS [None]
  - VARICOSE VEIN [None]
  - CEREBRAL ATROPHY [None]
  - DEPRESSION [None]
  - EMOTIONAL DISORDER [None]
  - INFLUENZA [None]
  - ANXIETY [None]
  - PSORIASIS [None]
  - FURUNCLE [None]
  - ENLARGED CLITORIS [None]
  - MALABSORPTION [None]
  - IRRITABILITY [None]
  - OEDEMA PERIPHERAL [None]
  - BLINDNESS TRANSIENT [None]
  - MULTIPLE INJURIES [None]
  - FUNGAL INFECTION [None]
  - INTRACRANIAL VENOUS SINUS THROMBOSIS [None]
  - OPTIC DISC DISORDER [None]
  - MUSCLE TWITCHING [None]
  - SLEEP APNOEA SYNDROME [None]
  - PHOTOPHOBIA [None]
  - CEREBRAL VENOUS THROMBOSIS [None]
  - VOMITING [None]
  - HYPERCOAGULATION [None]
  - HYPOAESTHESIA [None]
  - NECK PAIN [None]
  - CARDIAC FAILURE CONGESTIVE [None]
  - NAUSEA [None]
  - CEREBROVASCULAR ACCIDENT [None]
  - CEREBRAL INFARCTION [None]
  - BREAST MASS [None]
  - PAPILLOMA VIRAL INFECTION [None]
  - DERMAL CYST [None]
  - WEIGHT DECREASED [None]
  - LIMB INJURY [None]
  - AFFECT LABILITY [None]
  - CENTRAL PAIN SYNDROME [None]
  - CEREBELLAR HAEMORRHAGE [None]
  - HEADACHE [None]
  - BENIGN INTRACRANIAL HYPERTENSION [None]
  - SUBARACHNOID HAEMORRHAGE [None]
  - ALOPECIA [None]
  - ENCEPHALOMALACIA [None]
  - DRUG DEPENDENCE [None]
